FAERS Safety Report 11195047 (Version 5)
Quarter: 2017Q1

REPORT INFORMATION
  Report Type: Spontaneous
  Country: BR (occurrence: BR)
  Receive Date: 20150617
  Receipt Date: 20170307
  Transmission Date: 20170428
  Serious: Yes (Hospitalization, Other)
  Sender: FDA-Public Use
  Company Number: BR-AMGEN-BRACT2012031071

PATIENT
  Age: 53 Year
  Sex: Female
  Weight: 85 kg

DRUGS (59)
  1. PRELONE [Concomitant]
     Active Substance: PREDNISOLONE
     Indication: ARTHRITIS
     Dosage: UNK, AS NEEDED (WHEN IS WITH MUCH PAIN)
     Route: 065
  2. PAROXETINE. [Concomitant]
     Active Substance: PAROXETINE
     Indication: DEPRESSION
     Dosage: 20 MG, DAILY IN THE MORNING
     Dates: start: 2007
  3. PANTOPRAZOLE [Concomitant]
     Active Substance: PANTOPRAZOLE SODIUM
     Indication: CHRONIC GASTRITIS
  4. AMATO [Concomitant]
     Active Substance: TOPIRAMATE
     Dosage: 25 MG, DAILY AT NIGHT
  5. SOMALGIN CARDIO [Concomitant]
     Active Substance: ASPIRIN\DIHYDROXYALUMINUM AMINOACETATE ANHYDROUS\MAGNESIUM CARBONATE
     Indication: CEREBROVASCULAR ACCIDENT
     Dosage: UNK
     Route: 048
  6. MIOFLEX [Concomitant]
     Active Substance: SUCCINYLCHOLINE CHLORIDE
     Indication: ARTHRITIS
     Dosage: UNK
  7. ENBREL [Suspect]
     Active Substance: ETANERCEPT
     Indication: RHEUMATOID ARTHRITIS
     Dosage: 50 MG, WEEKLY
     Route: 058
     Dates: start: 2007, end: 201109
  8. CLOPIDOGREL [Concomitant]
     Active Substance: CLOPIDOGREL BISULFATE
     Indication: CEREBROVASCULAR ACCIDENT
     Dosage: UNK
     Route: 048
  9. LYRICA [Concomitant]
     Active Substance: PREGABALIN
     Indication: ARTHRITIS
     Dosage: 1 PER DAILY
     Dates: start: 2007
  10. ZANIDIP [Concomitant]
     Active Substance: LERCANIDIPINE HYDROCHLORIDE
     Indication: BLOOD PRESSURE INCREASED
  11. HYPERIUM [Concomitant]
     Active Substance: RILMENIDINE PHOSPHATE
     Indication: HYPERTENSION
  12. CALCIUM CARBONATE W/ERGOCALCIFEROL [Concomitant]
     Dosage: UNK, 1X/DAY (1000 MG CALCIUM CARBONATE + 4000 IU VIT D 1 TABLET AT NIGHT)
  13. CARISOPRODOL W/PARACETAMOL/PHENYLBUTAZONE [Concomitant]
     Dosage: 300 MG PARACETAMOL / 150 MG CARISOPRODOL / 75 MG PHENYLBUTAZONE
  14. ENBREL [Suspect]
     Active Substance: ETANERCEPT
     Dosage: 25 MG, 2X/WEEK
     Route: 065
  15. PRELONE [Concomitant]
     Active Substance: PREDNISOLONE
     Indication: RHEUMATOID ARTHRITIS
  16. CONDROFLEX [Concomitant]
     Active Substance: CHONDROITIN SULFATE (BOVINE)\GLUCOSAMINE SULFATE
     Indication: ARTHRITIS
     Dosage: UNK
  17. APRESOLINE HYDROCHLORIDE [Concomitant]
     Active Substance: HYDRALAZINE HYDROCHLORIDE
     Indication: BLOOD PRESSURE INCREASED
  18. VENLAFAXINE [Concomitant]
     Active Substance: VENLAFAXINE HYDROCHLORIDE
     Indication: VEIN DISORDER
     Dosage: UNK
     Route: 048
     Dates: start: 2007
  19. AZOPT [Concomitant]
     Active Substance: BRINZOLAMIDE
     Indication: GLAUCOMA
     Dosage: UNK
     Route: 047
     Dates: start: 2007
  20. HUMECTOL D [Concomitant]
     Indication: CONSTIPATION
     Dosage: UNK
  21. FLUOXETINE [Concomitant]
     Active Substance: FLUOXETINE HYDROCHLORIDE
     Indication: DEPRESSION
     Dosage: UNK
     Dates: start: 2007
  22. METRIX [Concomitant]
     Dosage: 500 MG, 1X/DAY (AT NIGHT)
  23. PARACETAMOL [Concomitant]
     Active Substance: ACETAMINOPHEN
     Indication: SPINAL PAIN
     Dosage: UNK, (STRENGTH 500MG +30 MG)
     Route: 048
  24. REUQUINOL [Concomitant]
     Active Substance: HYDROXYCHLOROQUINE SULFATE
     Indication: RHEUMATOID ARTHRITIS
     Dosage: UNK
  25. ENBREL [Suspect]
     Active Substance: ETANERCEPT
     Dosage: 50 MG, WEEKLY
     Route: 058
     Dates: start: 2007, end: 201109
  26. ENALAPRIL [Concomitant]
     Active Substance: ENALAPRIL
     Indication: HYPERTENSION
     Dosage: 20 MG, 2X/DAY (10 MG 2 TABLETS 12/12H)
  27. LANSOPRAZOLE. [Concomitant]
     Active Substance: LANSOPRAZOLE
     Dosage: 40 MG, 1 TABLET IN FASTING
  28. CALTRATE [Concomitant]
     Active Substance: CALCIUM CARBONATE
     Indication: ARTHRITIS
     Dosage: UNK
  29. FOLIC ACID. [Concomitant]
     Active Substance: FOLIC ACID
     Indication: ARTHRITIS
     Dosage: 5 MG, DAILY EXCEPT ON THE DAY OF METHOTREXATE
  30. HYPERIUM [Concomitant]
     Active Substance: RILMENIDINE PHOSPHATE
     Indication: BLOOD PRESSURE INCREASED
     Dosage: UNK
     Dates: start: 2010
  31. PROPANOLOL [Concomitant]
     Active Substance: PROPRANOLOL HYDROCHLORIDE
     Indication: HYPERTENSION
     Dosage: UNK
  32. SIMVASTATIN. [Concomitant]
     Active Substance: SIMVASTATIN
     Indication: VEIN DISORDER
     Dosage: UNK
  33. TAMARINE [Concomitant]
     Active Substance: HERBALS
     Indication: CONSTIPATION
     Dosage: UNK
  34. VENLAFAXINE [Concomitant]
     Active Substance: VENLAFAXINE HYDROCHLORIDE
     Indication: DEPRESSION
  35. PREDNISONE. [Concomitant]
     Active Substance: PREDNISONE
     Dosage: 15 MG, DAILY (10 MG AT BREAKFAST AND 5 MG AT DINNER)
  36. HARPAGOPHYTUM PROCUMBENS EXTRACT [Concomitant]
     Indication: ARTHRITIS
     Dosage: UNK
  37. NATRILIX [Concomitant]
     Active Substance: INDAPAMIDE
     Indication: HYPERTENSION
  38. METHOTREXATE. [Concomitant]
     Active Substance: METHOTREXATE
     Indication: RHEUMATOID ARTHRITIS
     Dosage: 2.5 MG, 2X/DAY (3 TABLETS 12/12H)
     Route: 048
  39. ZETRON [Concomitant]
     Indication: DEPRESSION
     Dosage: UNK
     Route: 048
     Dates: start: 2007
  40. HIDROGEL [Concomitant]
     Indication: VEIN DISORDER
     Dosage: UNK
  41. SOMALGIN [Concomitant]
     Active Substance: ASPIRIN\DIHYDROXYALUMINUM AMINOACETATE ANHYDROUS\MAGNESIUM CARBONATE
     Dosage: 325 MG, 1X/DAY AT LUNCH
  42. CORDIRON [Concomitant]
     Dosage: 10 MG, DAILY
  43. APRESOLINE HYDROCHLORIDE [Concomitant]
     Active Substance: HYDRALAZINE HYDROCHLORIDE
     Indication: HYPERTENSION
     Dosage: 50 MG, 3X/DAY (8/8H)
     Dates: start: 2007
  44. DIOVAN [Concomitant]
     Active Substance: VALSARTAN
     Indication: HYPERTENSION
     Dosage: UNK
     Route: 048
     Dates: start: 2007
  45. DIOVAN [Concomitant]
     Active Substance: VALSARTAN
     Indication: BLOOD PRESSURE INCREASED
  46. METHOTREXATE. [Concomitant]
     Active Substance: METHOTREXATE
     Dosage: 6 TABLETS, WEEKLY
  47. PANTOPRAZOLE [Concomitant]
     Active Substance: PANTOPRAZOLE SODIUM
     Indication: GASTRITIS
     Dosage: 40 MG, DAILY IN THE MORNING (FASTING)
     Dates: start: 2007
  48. FAMOTIDINE. [Concomitant]
     Active Substance: FAMOTIDINE
     Indication: GASTRITIS
     Dosage: 40 MG, 2X/DAY (BREAKFAST AND AT DINNER)
     Dates: start: 2007
  49. ANCORON [Concomitant]
     Active Substance: AMIODARONE HYDROCHLORIDE
     Dosage: 10 MG, 1X/DAY (AT NIGHT)
  50. VELIJA [Concomitant]
     Active Substance: DULOXETINE HYDROCHLORIDE
     Indication: RHEUMATOID ARTHRITIS
     Dosage: UNK
     Route: 048
  51. ENBREL [Suspect]
     Active Substance: ETANERCEPT
     Dosage: 50 MG, WEEKLY
     Route: 058
     Dates: start: 201209
  52. DEPAKENE [Concomitant]
     Active Substance: VALPROIC ACID
     Dosage: UNK
  53. METHOTREXATE. [Concomitant]
     Active Substance: METHOTREXATE
     Indication: ARTHRITIS
     Dosage: 1 DF, WEEKLY
  54. FAMOX [Concomitant]
     Indication: GASTRITIS
     Dosage: 4 MG, 1X/DAY (AT NIGHT)
  55. ZANIDIP [Concomitant]
     Active Substance: LERCANIDIPINE HYDROCHLORIDE
     Indication: HYPERTENSION
     Dosage: UNK
     Route: 048
     Dates: start: 2010
  56. XALATAN [Concomitant]
     Active Substance: LATANOPROST
     Indication: GLAUCOMA
     Dosage: UNK
     Route: 047
     Dates: start: 2007
  57. GLUCOSAMINE SULFATE [Concomitant]
     Active Substance: GLUCOSAMINE SULFATE
     Dosage: 500 MG, 3X/DAY (1 TABLET AFTER BREAKFAST, LUNCH AND DINNER)
  58. TENORETIC [Concomitant]
     Active Substance: ATENOLOL\CHLORTHALIDONE
     Dosage: 1 DF, DAILY (10/25 MG) 1 TABLET IN THE MORNING
  59. HARPADOL [Concomitant]
     Indication: ARTHRITIS
     Dosage: UNK

REACTIONS (10)
  - Liver disorder [Not Recovered/Not Resolved]
  - Product quality issue [Not Recovered/Not Resolved]
  - Injection site haemorrhage [Not Recovered/Not Resolved]
  - Cholelithiasis [Recovered/Resolved]
  - Injection site discolouration [Not Recovered/Not Resolved]
  - Cartilage atrophy [Not Recovered/Not Resolved]
  - Injection site pain [Unknown]
  - Injection site pain [Not Recovered/Not Resolved]
  - Hepatic steatosis [Not Recovered/Not Resolved]
  - Wrong technique in product usage process [Not Recovered/Not Resolved]

NARRATIVE: CASE EVENT DATE: 2011
